FAERS Safety Report 24849964 (Version 1)
Quarter: 2025Q1

REPORT INFORMATION
  Report Type: Spontaneous
  Country: PL (occurrence: None)
  Receive Date: 20250115
  Receipt Date: 20250115
  Transmission Date: 20250409
  Serious: No
  Sender: FDA-CTU
  Company Number: None

PATIENT
  Age: 27 Year
  Sex: Male
  Weight: 100 kg

DRUGS (1)
  1. ESCITALOPRAM OXALATE [Suspect]
     Active Substance: ESCITALOPRAM OXALATE
     Indication: Anxiety disorder
     Dates: start: 20191112, end: 20200708

REACTIONS (6)
  - Libido decreased [None]
  - Erectile dysfunction [None]
  - Depressed mood [None]
  - Penile size reduced [None]
  - Libido decreased [None]
  - Sexual dysfunction [None]

NARRATIVE: CASE EVENT DATE: 20200113
